FAERS Safety Report 23115723 (Version 1)
Quarter: 2023Q4

REPORT INFORMATION
  Report Type: Spontaneous
  Country: CN (occurrence: CN)
  Receive Date: 20231027
  Receipt Date: 20231027
  Transmission Date: 20240110
  Serious: Yes (Hospitalization)
  Sender: FDA-Public Use
  Company Number: CN-Merck Healthcare KGaA-2023482050

PATIENT
  Age: 66 Year
  Sex: Male
  Weight: 60 kg

DRUGS (4)
  1. ERBITUX [Suspect]
     Active Substance: CETUXIMAB
     Indication: Hypopharyngeal cancer
     Dosage: 800 MG, SINGLE (ONCE, D0)
     Route: 041
     Dates: start: 20230909, end: 20230909
  2. DOCETAXEL [Suspect]
     Active Substance: DOCETAXEL
     Indication: Hypopharyngeal cancer
     Dosage: 120 MG, DAILY
     Route: 041
     Dates: start: 20230910, end: 20230910
  3. CISPLATIN [Suspect]
     Active Substance: CISPLATIN
     Indication: Hypopharyngeal cancer
     Dosage: 40 MG, DAILY (DAY 1-3)
     Route: 041
     Dates: start: 20230910, end: 20230912
  4. SINTILIMAB [Suspect]
     Active Substance: SINTILIMAB
     Indication: Hypopharyngeal cancer
     Dosage: 200 MG, DAILY (ONE CYCLE OF TREATMENT)
     Route: 041
     Dates: start: 20230915, end: 20230915

REACTIONS (3)
  - Hepatic function abnormal [Recovering/Resolving]
  - Pyrexia [Recovering/Resolving]
  - Granulocyte count decreased [Recovering/Resolving]

NARRATIVE: CASE EVENT DATE: 20230918
